FAERS Safety Report 6504019-6 (Version None)
Quarter: 2009Q4

REPORT INFORMATION
  Report Type: 
  Country: None (occurrence: None)
  Receive Date: 20091216
  Receipt Date: 20091216
  Transmission Date: 20100525
  Serious: Yes (Other)
  Sender: FDA-Public Use
  Company Number: None

PATIENT
  Sex: Female
  Weight: 49.8957 kg

DRUGS (2)
  1. BUPROPION HYDROCHLORIDE [Suspect]
     Indication: ANXIETY DISORDER
     Dosage: 150 MG 1 TABQ.DAY ORAL
     Route: 048
     Dates: start: 20090921, end: 20091104
  2. BUPROPION HYDROCHLORIDE [Suspect]
     Indication: MAJOR DEPRESSION
     Dosage: 150 MG 1 TABQ.DAY ORAL
     Route: 048
     Dates: start: 20090921, end: 20091104

REACTIONS (1)
  - DRUG INEFFECTIVE [None]
